FAERS Safety Report 9423065 (Version 1)
Quarter: 2013Q3

REPORT INFORMATION
  Report Type: Spontaneous
  Country: DE (occurrence: None)
  Receive Date: 20130717
  Receipt Date: 20130717
  Transmission Date: 20140515
  Serious: Yes (Hospitalization)
  Sender: FDA-Public Use
  Company Number: AEDEU201300250

PATIENT
  Age: 22 Year
  Sex: Female
  Weight: 51 kg

DRUGS (3)
  1. GAMUNEX (IMMUNE GLOBULIN IV (HUMAN), CAPRYLATE/CHROMATOGRAPHY PURIFIED) (10 PCT) [Suspect]
     Indication: TRANSPLANT REJECTION
     Route: 042
     Dates: start: 20130510
  2. TACROLIMUS [Concomitant]
  3. MYCOPHENOLATE [Concomitant]

REACTIONS (4)
  - Haemolysis [None]
  - Renal failure [None]
  - Malaise [None]
  - Vomiting [None]
